FAERS Safety Report 4928893-X (Version None)
Quarter: 2006Q1

REPORT INFORMATION
  Report Type: 
  Country: None (occurrence: None)
  Receive Date: 20060223
  Receipt Date: 20060209
  Transmission Date: 20060701
  Serious: Yes (Other)
  Sender: FDA-Public Use
  Company Number: GXKR2006US00915

PATIENT
  Age: 31 Year
  Sex: Male

DRUGS (7)
  1. CEFTRIAXONE [Suspect]
     Indication: MENINGITIS PNEUMOCOCCAL
     Dosage: SEE IMAGE
     Route: 042
  2. DEXAMETHASONE [Suspect]
     Indication: MENINGITIS
     Dosage: 10 MG, INTRAVENOUS
     Route: 042
  3. HALOPERIDOL [Suspect]
     Indication: MENINGITIS
     Dosage: 5 MG, INTRAVENOUS
     Route: 042
  4. LORAZEPAM [Suspect]
     Indication: MENINGITIS
     Dosage: 4 MG, INTRAVENOUS
     Route: 042
  5. MIDAZOLAM (NGX) (MIDAZOLAM) [Suspect]
     Indication: MENINGITIS
     Dosage: 4 MG, INTRAVENOUS
     Route: 042
  6. FENTANYL [Suspect]
     Indication: MENINGITIS
     Dosage: 100 A,AUG, INTRAVENOUS
     Route: 042
  7. VANCOMYCIN [Concomitant]

REACTIONS (4)
  - ALANINE AMINOTRANSFERASE INCREASED [None]
  - ASPARTATE AMINOTRANSFERASE INCREASED [None]
  - LUNG INFILTRATION [None]
  - PROTHROMBIN TIME PROLONGED [None]
